FAERS Safety Report 7353883-X (Version None)
Quarter: 2011Q1

REPORT INFORMATION
  Report Type: 
  Country: None (occurrence: None)
  Receive Date: 20110315
  Receipt Date: 20101221
  Transmission Date: 20110831
  Serious: No
  Sender: FDA-Public Use
  Company Number: US-BAYER-2010-009306

PATIENT
  Sex: Female
  Weight: 65.76 kg

DRUGS (2)
  1. MULTI-VITAMINS [Suspect]
     Indication: VITAMIN SUPPLEMENTATION
     Dosage: BOTTLE COUNT 100S
     Dates: start: 19950101
  2. ANTIDEPRESSANTS [Concomitant]

REACTIONS (1)
  - VITAMIN D INCREASED [None]
